FAERS Safety Report 24837965 (Version 1)
Quarter: 2025Q1

REPORT INFORMATION
  Report Type: Spontaneous
  Country: US (occurrence: US)
  Receive Date: 20250113
  Receipt Date: 20250113
  Transmission Date: 20250409
  Serious: Yes (Hospitalization, Other)
  Sender: SANOFI AVENTIS
  Company Number: US-SA-2025SA010352

PATIENT
  Age: 60 Year
  Sex: Female
  Weight: 78.64 kg

DRUGS (2)
  1. DUPIXENT [Suspect]
     Active Substance: DUPILUMAB
     Indication: Asthma
     Dosage: 300MG QOW
     Route: 058
  2. DUPIXENT [Suspect]
     Active Substance: DUPILUMAB
     Indication: Chronic obstructive pulmonary disease

REACTIONS (8)
  - Pneumonia [Recovered/Resolved]
  - Nasopharyngitis [Recovering/Resolving]
  - Cough [Recovering/Resolving]
  - Respiratory disorder [Recovering/Resolving]
  - Injection site urticaria [Not Recovered/Not Resolved]
  - Injection site erythema [Not Recovered/Not Resolved]
  - General symptom [Recovering/Resolving]
  - Product use in unapproved indication [Unknown]

NARRATIVE: CASE EVENT DATE: 20240112
